FAERS Safety Report 4662760-4 (Version None)
Quarter: 2005Q2

REPORT INFORMATION
  Report Type: 
  Country: None (occurrence: None)
  Receive Date: 20050512
  Receipt Date: 20050422
  Transmission Date: 20051028
  Serious: Yes (Other)
  Sender: FDA-Public Use
  Company Number: US_0504115760

PATIENT
  Age: 56 Year
  Sex: Female

DRUGS (5)
  1. CEFACLOR [Suspect]
     Indication: GINGIVITIS
     Dosage: 750 MG/DAY
     Dates: start: 20050218, end: 20050228
  2. BUFFERIN [Concomitant]
  3. EXCELASE [Concomitant]
  4. ACETAMINOPHEN [Concomitant]
  5. PRAVASTATIN [Concomitant]

REACTIONS (9)
  - ABDOMINAL PAIN [None]
  - ANAPHYLACTIC SHOCK [None]
  - BLOOD PRESSURE SYSTOLIC INCREASED [None]
  - DYSPNOEA [None]
  - ECZEMA [None]
  - FEELING ABNORMAL [None]
  - HYPOAESTHESIA ORAL [None]
  - PRURITUS GENERALISED [None]
  - RASH PAPULAR [None]
